FAERS Safety Report 12497545 (Version 1)
Quarter: 2016Q2

REPORT INFORMATION
  Report Type: Spontaneous
  Country: VE (occurrence: VE)
  Receive Date: 20160625
  Receipt Date: 20160625
  Transmission Date: 20160815
  Serious: Yes (Death, Other)
  Sender: FDA-Public Use
  Company Number: PHHY2016VE086641

PATIENT
  Sex: Female

DRUGS (2)
  1. LEXOTANIL [Concomitant]
     Active Substance: BROMAZEPAM
     Indication: AGITATION
     Route: 065
  2. DIOVAN [Suspect]
     Active Substance: VALSARTAN
     Indication: PRODUCT USED FOR UNKNOWN INDICATION
     Route: 065

REACTIONS (3)
  - Aortic aneurysm [Unknown]
  - Post procedural complication [Fatal]
  - Weight decreased [Unknown]

NARRATIVE: CASE EVENT DATE: 2004
